FAERS Safety Report 4904884-X (Version None)
Quarter: 2006Q1

REPORT INFORMATION
  Report Type: 
  Country: None (occurrence: None)
  Receive Date: 20060208
  Receipt Date: 20051014
  Transmission Date: 20060701
  Serious: No
  Sender: FDA-Public Use
  Company Number: S05-USA-04513-01

PATIENT
  Age: 68 Year
  Sex: Female

DRUGS (4)
  1. PAXIL [Suspect]
     Indication: DEPRESSION
     Route: 065
     Dates: start: 20050909, end: 20050923
  2. CAMPRAL [Suspect]
     Indication: ALCOHOLISM
     Dosage: 666MG THREE TIMES PER DAY
     Route: 048
     Dates: start: 20050909
  3. BLOOD PRESSURE MEDICATION [Concomitant]
  4. VITAMINS [Concomitant]

REACTIONS (1)
  - ABNORMAL DREAMS [None]
